FAERS Safety Report 9391411 (Version 2)
Quarter: 2013Q3

REPORT INFORMATION
  Report Type: Spontaneous
  Country: IN (occurrence: IN)
  Receive Date: 20130709
  Receipt Date: 20130722
  Transmission Date: 20140515
  Serious: Yes (Hospitalization, Other)
  Sender: FDA-Public Use
  Company Number: IN-BAYER-2013-082455

PATIENT
  Age: 58 Year
  Sex: Male

DRUGS (1)
  1. ULTRAVIST [Suspect]
     Indication: UROGRAM
     Dosage: 20 ML, ONCE
     Dates: start: 20130705, end: 20130705

REACTIONS (3)
  - Discomfort [Recovering/Resolving]
  - Blood pressure decreased [None]
  - Bradycardia [Recovering/Resolving]
